FAERS Safety Report 16801524 (Version 1)
Quarter: 2019Q3

REPORT INFORMATION
  Report Type: Spontaneous
  Country: US (occurrence: US)
  Receive Date: 20190912
  Receipt Date: 20190912
  Transmission Date: 20191005
  Serious: No
  Sender: FDA-Public Use
  Company Number: US-AMNEAL PHARMACEUTICALS-2018AMN00864

PATIENT

DRUGS (1)
  1. GABAPENTIN. [Suspect]
     Active Substance: GABAPENTIN
     Indication: NEURALGIA
     Dosage: 1 CAPSULES, 2X/DAY
     Route: 048
     Dates: start: 20181019

REACTIONS (2)
  - Treatment noncompliance [Unknown]
  - Weight increased [Not Recovered/Not Resolved]
